FAERS Safety Report 12453218 (Version 2)
Quarter: 2016Q2

REPORT INFORMATION
  Report Type: Spontaneous
  Country: US (occurrence: US)
  Receive Date: 20160609
  Receipt Date: 20160624
  Transmission Date: 20160815
  Serious: Yes (Hospitalization, Other)
  Sender: FDA-Public Use
  Company Number: US-BAYER-2016-113439

PATIENT
  Age: 33 Year
  Sex: Male

DRUGS (3)
  1. ULTRAVIST [Suspect]
     Active Substance: IOPROMIDE
     Indication: ABDOMINAL PAIN UPPER
  2. ULTRAVIST [Suspect]
     Active Substance: IOPROMIDE
     Indication: ABDOMINAL HERNIA
  3. ULTRAVIST [Suspect]
     Active Substance: IOPROMIDE
     Indication: COMPUTERISED TOMOGRAM
     Dosage: 100 ML, ONCE
     Route: 042
     Dates: start: 20160523, end: 20160523

REACTIONS (9)
  - Sneezing [Recovering/Resolving]
  - Oral discomfort [Recovering/Resolving]
  - Urticaria [Recovering/Resolving]
  - Pruritus generalised [Recovering/Resolving]
  - Nasal congestion [Recovering/Resolving]
  - Dyskinesia [Recovering/Resolving]
  - Swelling face [Recovering/Resolving]
  - Dyspnoea [Recovering/Resolving]
  - Emotional distress [Recovering/Resolving]

NARRATIVE: CASE EVENT DATE: 20160523
